FAERS Safety Report 8102259-6 (Version None)
Quarter: 2012Q1

REPORT INFORMATION
  Report Type: 
  Country: None (occurrence: None)
  Receive Date: 20120131
  Receipt Date: 20120131
  Transmission Date: 20120608
  Serious: Yes (Hospitalization)
  Sender: FDA-Public Use
  Company Number: None

PATIENT
  Age: 57 Year
  Sex: Male
  Weight: 73 kg

DRUGS (5)
  1. LISINOPRIL [Concomitant]
  2. CARVEDILOL [Concomitant]
  3. CRESTOR [Suspect]
     Indication: HYPERLIPIDAEMIA
     Dosage: 20MG DAILY ORAL
     Route: 048
     Dates: start: 20111129, end: 20111210
  4. CRESTOR [Suspect]
     Indication: CORONARY ARTERY DISEASE
     Dosage: 20MG DAILY ORAL
     Route: 048
     Dates: start: 20111129, end: 20111210
  5. ASPIRIN [Concomitant]

REACTIONS (5)
  - ALCOHOL POISONING [None]
  - ELECTROCARDIOGRAM ST SEGMENT ELEVATION [None]
  - ACUTE MYOCARDIAL INFARCTION [None]
  - VASCULAR GRAFT OCCLUSION [None]
  - CHEST PAIN [None]
